FAERS Safety Report 5637466-5 (Version None)
Quarter: 2008Q1

REPORT INFORMATION
  Report Type: 
  Country: None (occurrence: None)
  Receive Date: 20080225
  Receipt Date: 20080129
  Transmission Date: 20080703
  Serious: No
  Sender: FDA-Public Use
  Company Number: US-BOEHRINGER INGELHEIM GMBH, GERMANY-2008-BP-01484BP

PATIENT
  Sex: Male

DRUGS (2)
  1. AGGRENOX [Suspect]
     Indication: CEREBROVASCULAR ACCIDENT PROPHYLAXIS
     Route: 048
     Dates: end: 20080101
  2. AGGRENOX [Suspect]
     Indication: TRANSIENT ISCHAEMIC ATTACK

REACTIONS (2)
  - CHEST PAIN [None]
  - HEADACHE [None]
